FAERS Safety Report 7233982-3 (Version None)
Quarter: 2011Q1

REPORT INFORMATION
  Report Type: 
  Country: None (occurrence: None)
  Receive Date: 20110119
  Receipt Date: 20100401
  Transmission Date: 20110831
  Serious: No
  Sender: FDA-Public Use
  Company Number: US-TEVA-229738USA

PATIENT
  Sex: Female
  Weight: 72.64 kg

DRUGS (5)
  1. BACTRIM [Concomitant]
  2. CETIRIZINE HYDROCHLORIDE [Concomitant]
  3. FLUTICASONE PROPIONATE [Concomitant]
  4. COPAXONE [Suspect]
     Indication: MULTIPLE SCLEROSIS
     Dosage: QD (DAILY)
     Route: 058
     Dates: end: 20100330
  5. AMANTADINE HCL [Concomitant]

REACTIONS (1)
  - IMMEDIATE POST-INJECTION REACTION [None]
